FAERS Safety Report 6689188-X (Version None)
Quarter: 2010Q2

REPORT INFORMATION
  Report Type: 
  Country: None (occurrence: None)
  Receive Date: 20100415
  Receipt Date: 20100401
  Transmission Date: 20101027
  Serious: Yes (Hospitalization)
  Sender: FDA-Public Use
  Company Number: 2009SP023137

PATIENT
  Age: 24 Year
  Sex: Female

DRUGS (3)
  1. NUVARING [Suspect]
     Indication: CONTRACEPTION
     Dosage: 1 DF; QM; VAG
     Route: 067
     Dates: start: 20060423, end: 20060530
  2. LEVOTHYROXINE [Concomitant]
  3. TYLENOL-500 [Concomitant]

REACTIONS (13)
  - ASTHENIA [None]
  - CEREBRAL INFARCTION [None]
  - COMPLICATED MIGRAINE [None]
  - CONTUSION [None]
  - FALL [None]
  - HEART RATE IRREGULAR [None]
  - HYPOAESTHESIA [None]
  - PHONOPHOBIA [None]
  - PHOTOPHOBIA [None]
  - PINEAL GLAND CYST [None]
  - PRESYNCOPE [None]
  - SPEECH DISORDER [None]
  - VISION BLURRED [None]
